FAERS Safety Report 8184942-X (Version None)
Quarter: 2012Q1

REPORT INFORMATION
  Report Type: 
  Country: None (occurrence: None)
  Receive Date: 20120305
  Receipt Date: 20120301
  Transmission Date: 20120608
  Serious: Yes (Other)
  Sender: FDA-Public Use
  Company Number: US-GLAXOSMITHKLINE-B0708616A

PATIENT
  Sex: Female
  Weight: 72.3 kg

DRUGS (10)
  1. LIPITOR [Concomitant]
  2. ASPIRIN [Concomitant]
  3. METFORMIN HCL [Concomitant]
  4. AVANDAMET [Suspect]
     Indication: DIABETES MELLITUS
     Route: 048
     Dates: start: 20020101
  5. AVANDIA [Suspect]
     Indication: DIABETES MELLITUS
     Dosage: 8MG PER DAY
     Route: 048
     Dates: end: 20100426
  6. ZANTAC [Concomitant]
  7. NORVASC [Concomitant]
  8. ZETIA [Concomitant]
  9. BONIVA [Concomitant]
  10. WARFARIN SODIUM [Concomitant]

REACTIONS (1)
  - HAEMORRHAGIC STROKE [None]
